FAERS Safety Report 9897481 (Version 2)
Quarter: 2014Q1

REPORT INFORMATION
  Report Type: Spontaneous
  Country: US (occurrence: US)
  Receive Date: 20140214
  Receipt Date: 20140220
  Transmission Date: 20141002
  Serious: No
  Sender: FDA-Public Use
  Company Number: US-TEVA-462209USA

PATIENT
  Age: 78 Year
  Sex: Male
  Weight: 63.56 kg

DRUGS (12)
  1. QNASL [Suspect]
     Indication: SINUSITIS
     Dates: start: 20140205, end: 20140207
  2. QNASL [Suspect]
     Indication: INCREASED UPPER AIRWAY SECRETION
  3. ZOLOFT [Concomitant]
     Indication: ANXIETY
     Dosage: 100 MILLIGRAM DAILY;
  4. CRESTOR [Concomitant]
     Indication: BLOOD CHLORIDE ABNORMAL
  5. LORAZEPAM [Concomitant]
     Indication: INSOMNIA
  6. AVODART [Concomitant]
     Indication: RENAL DISORDER
  7. AVODART [Concomitant]
     Indication: NEPHROLITHIASIS
  8. TYLENOL [Concomitant]
  9. VITAMIN D [Concomitant]
  10. DEXILANT [Concomitant]
     Indication: BARRETT^S OESOPHAGUS
     Dosage: 60 MILLIGRAM DAILY;
  11. LIBRAX [Concomitant]
     Dosage: 5MG/2.5MG
  12. SALINE [Concomitant]

REACTIONS (4)
  - Tongue discolouration [Not Recovered/Not Resolved]
  - Erythema [Not Recovered/Not Resolved]
  - Drug ineffective [Not Recovered/Not Resolved]
  - Sensation of pressure [Unknown]
